FAERS Safety Report 6850539-4 (Version None)
Quarter: 2010Q3

REPORT INFORMATION
  Report Type: 
  Country: None (occurrence: None)
  Receive Date: 20100716
  Receipt Date: 20071112
  Transmission Date: 20110219
  Serious: No
  Sender: FDA-Public Use
  Company Number: US-PFIZER INC-2007087906

PATIENT
  Sex: Female
  Weight: 69.5 kg

DRUGS (12)
  1. CHANTIX [Suspect]
     Indication: SMOKING CESSATION THERAPY
     Dates: start: 20071012, end: 20071001
  2. CLARITIN [Concomitant]
     Indication: HYPERSENSITIVITY
  3. REGLAN [Concomitant]
  4. CARAFATE [Concomitant]
  5. OMEPRAZOLE [Concomitant]
  6. CRESTOR [Concomitant]
  7. VERAPAMIL [Concomitant]
     Indication: SUPRAVENTRICULAR TACHYCARDIA
  8. ATIVAN [Concomitant]
     Indication: SLEEP DISORDER
  9. FLEXERIL [Concomitant]
     Indication: BACK PAIN
  10. BENADRYL [Concomitant]
     Indication: HYPERSENSITIVITY
  11. DARVOCET [Concomitant]
     Indication: BACK PAIN
  12. DARVOCET [Concomitant]
     Indication: FIBROMYALGIA

REACTIONS (8)
  - ABNORMAL DREAMS [None]
  - AGITATION [None]
  - FEELING ABNORMAL [None]
  - INSOMNIA [None]
  - NAUSEA [None]
  - PRURITUS [None]
  - RASH [None]
  - VOMITING [None]
